FAERS Safety Report 8378433-0 (Version None)
Quarter: 2012Q2

REPORT INFORMATION
  Report Type: 
  Country: None (occurrence: None)
  Receive Date: 20120522
  Receipt Date: 20111111
  Transmission Date: 20120825
  Serious: No
  Sender: FDA-Public Use
  Company Number: US-ASTRAZENECA-2011SE68577

PATIENT
  Age: 42 Year
  Sex: Male

DRUGS (10)
  1. TESTIM [Suspect]
     Route: 065
  2. PRILOSEC [Suspect]
     Route: 048
  3. BACLOFEN [Suspect]
     Route: 065
  4. SIMVASTATIN [Suspect]
     Route: 065
  5. MELOXICAM [Suspect]
     Route: 065
  6. TIZANIDINE HYDROCHLORIDE [Suspect]
     Route: 065
  7. WELLBUTRIN XL [Suspect]
     Route: 065
  8. OXYBUTYNIN [Suspect]
     Route: 065
  9. IMITREX [Suspect]
     Route: 065
  10. BETASERON [Suspect]
     Route: 065

REACTIONS (2)
  - DYSPEPSIA [None]
  - GASTROOESOPHAGEAL REFLUX DISEASE [None]
